FAERS Safety Report 5951049-9 (Version None)
Quarter: 2008Q4

REPORT INFORMATION
  Report Type: 
  Country: None (occurrence: None)
  Receive Date: 20081110
  Receipt Date: 20081027
  Transmission Date: 20090506
  Serious: Yes (Life-Threatening)
  Sender: FDA-Public Use
  Company Number: 100#03#2008-05501

PATIENT
  Age: 26 Year
  Sex: Female

DRUGS (6)
  1. VENLAFAXINE HCL [Suspect]
     Indication: DEPRESSION
     Dosage: 225 MG
     Route: 048
     Dates: start: 20080514, end: 20080604
  2. CITALOPRAM HYDROBROMIDE [Concomitant]
  3. DIAZEPAM [Concomitant]
  4. OLANZAPINE [Concomitant]
  5. PROCYCLIDINE HYDROCHLORIDE 2MG TAB [Concomitant]
  6. RISPERDAL [Concomitant]

REACTIONS (3)
  - CIRCULATORY COLLAPSE [None]
  - HYPOVOLAEMIC SHOCK [None]
  - SPLENIC RUPTURE [None]
